FAERS Safety Report 4554875-6 (Version None)
Quarter: 2004Q4

REPORT INFORMATION
  Report Type: 
  Country: None (occurrence: None)
  Receive Date: 20041222
  Receipt Date: 20040831
  Transmission Date: 20050328
  Serious: Yes (Hospitalization)
  Sender: FDA-Public Use
  Company Number: 208812

PATIENT
  Age: 79 Year
  Sex: Male

DRUGS (1)
  1. AVASTIN [Suspect]
     Indication: COLORECTAL CANCER METASTATIC
     Dosage: 385 MG, Q2W, INTRAVENOUS
     Route: 042
     Dates: start: 20040810

REACTIONS (2)
  - ASTHENIA [None]
  - DYSPNOEA [None]
